FAERS Safety Report 19508228 (Version 2)
Quarter: 2021Q3

REPORT INFORMATION
  Report Type: Report from Study
  Country: JP (occurrence: JP)
  Receive Date: 20210708
  Receipt Date: 20210723
  Transmission Date: 20211014
  Serious: Yes (Hospitalization, Other)
  Sender: FDA-Public Use
  Company Number: JP-ALNYLAM PHARMACEUTICALS, INC.-ALN-2021-000769

PATIENT

DRUGS (14)
  1. ONPATTRO [Suspect]
     Active Substance: PATISIRAN SODIUM
     Indication: HEREDITARY NEUROPATHIC AMYLOIDOSIS
     Dosage: 2 VIALS (DETAILS UNKNOWN)
     Route: 041
     Dates: start: 20210113, end: 20210317
  2. DEXART [Concomitant]
     Active Substance: DEXAMETHASONE SODIUM PHOSPHATE
     Indication: PROPHYLAXIS
     Dosage: 1.5 VIALS
     Route: 041
     Dates: start: 20210113, end: 20210317
  3. CALONAL [Concomitant]
     Active Substance: ACETAMINOPHEN
     Indication: PROPHYLAXIS
     Dosage: 1 DOSAGE FORM
     Route: 048
     Dates: start: 20210113, end: 20210317
  4. DEXART [Concomitant]
     Active Substance: DEXAMETHASONE SODIUM PHOSPHATE
     Dosage: 1.5 VIALS
     Route: 041
     Dates: start: 20210628, end: 20210628
  5. GASTER [Concomitant]
     Active Substance: FAMOTIDINE
     Dosage: 2 AMPULES
     Route: 041
     Dates: start: 20210628, end: 20210628
  6. PANVITAN [Concomitant]
     Active Substance: VITAMINS
     Dosage: 1 GRAM
     Route: 048
     Dates: start: 20210628
  7. PANVITAN [Concomitant]
     Active Substance: VITAMINS
     Indication: VITAMIN SUPPLEMENTATION
     Dosage: 1 GRAM
     Route: 048
     Dates: start: 20210113, end: 20210317
  8. NORMAL SALINE [Suspect]
     Active Substance: SODIUM CHLORIDE
     Indication: MEDICATION DILUTION
     Dosage: UNK
     Route: 065
  9. GASTER [Concomitant]
     Active Substance: FAMOTIDINE
     Indication: PROPHYLAXIS
     Dosage: 2 AMPULES
     Route: 041
     Dates: start: 20210113, end: 20210317
  10. POLARAMINE [Concomitant]
     Active Substance: DEXCHLORPHENIRAMINE MALEATE
     Dosage: 1 AMPULE
     Route: 041
     Dates: start: 20210628, end: 20210628
  11. CALONAL [Concomitant]
     Active Substance: ACETAMINOPHEN
     Dosage: 1 DOSAGE FORM
     Route: 048
     Dates: start: 20210628, end: 20210628
  12. POLARAMINE [Concomitant]
     Active Substance: DEXCHLORPHENIRAMINE MALEATE
     Indication: PROPHYLAXIS
     Dosage: 1 AMPULE
     Route: 041
     Dates: start: 20210113, end: 20210317
  13. ONPATTRO [Suspect]
     Active Substance: PATISIRAN SODIUM
     Dosage: 14.7 MILLIGRAM
     Route: 041
     Dates: start: 20210628, end: 20210628
  14. GLUCOSE [Concomitant]
     Active Substance: DEXTROSE
     Indication: PREMEDICATION
     Dosage: 50 MILLILITER
     Route: 041
     Dates: start: 20210628, end: 20210628

REACTIONS (5)
  - Bradycardia [Recovering/Resolving]
  - Abdominal pain [Not Recovered/Not Resolved]
  - Diarrhoea [Not Recovered/Not Resolved]
  - Cardiac failure [Recovering/Resolving]
  - Muscular weakness [Unknown]

NARRATIVE: CASE EVENT DATE: 2021
